FAERS Safety Report 11130639 (Version 2)
Quarter: 2015Q3

REPORT INFORMATION
  Report Type: Spontaneous
  Country: US (occurrence: None)
  Receive Date: 20150520
  Receipt Date: 20150722
  Transmission Date: 20151125
  Serious: Yes (Life-Threatening, Hospitalization)
  Sender: FDA-Public Use
  Company Number: 1713747-2015-999150

PATIENT
  Age: 55 Year
  Sex: Male
  Weight: 68 kg

DRUGS (17)
  1. DIALYSIS MACHINE [Concomitant]
  2. DIALYZER [Concomitant]
  3. CONCENTRATES [Concomitant]
  4. SALINE 0.9% 1L, 12PK [Suspect]
     Active Substance: SODIUM CHLORIDE
     Indication: HAEMODIALYSIS
     Route: 042
  5. BLOODLINE SET [Concomitant]
  6. CRESTOR [Concomitant]
     Active Substance: ROSUVASTATIN CALCIUM
  7. K-DUR [Concomitant]
     Active Substance: POTASSIUM CHLORIDE
  8. EPOGEN [Concomitant]
     Active Substance: ERYTHROPOIETIN
  9. VENOFER [Concomitant]
     Active Substance: IRON SUCROSE
  10. CARDIZEM LA [Concomitant]
     Active Substance: DILTIAZEM HYDROCHLORIDE
  11. DIOVAN [Concomitant]
     Active Substance: VALSARTAN
  12. TRICOR [Concomitant]
     Active Substance: FENOFIBRATE
  13. HEPARIN [Concomitant]
     Active Substance: HEPARIN SODIUM
  14. CALICTRIOL [Concomitant]
  15. BYSTOLIC [Concomitant]
     Active Substance: NEBIVOLOL HYDROCHLORIDE
  16. LANTUS [Concomitant]
     Active Substance: INSULIN GLARGINE
  17. LAXIS [Concomitant]

REACTIONS (6)
  - Unresponsive to stimuli [None]
  - Myocardial infarction [None]
  - Cardio-respiratory arrest [None]
  - Pneumonia aspiration [None]
  - Hypokalaemia [None]
  - Atrial fibrillation [None]

NARRATIVE: CASE EVENT DATE: 20150504
